FAERS Safety Report 20237999 (Version 1)
Quarter: 2021Q4

REPORT INFORMATION
  Report Type: Spontaneous
  Country: US (occurrence: US)
  Receive Date: 20211228
  Receipt Date: 20211228
  Transmission Date: 20220303
  Serious: No
  Sender: FDA-Public Use
  Company Number: US-PERRIGO-21US024938

PATIENT
  Age: 34 Year
  Sex: Female
  Weight: 79.365 kg

DRUGS (4)
  1. TIOCONAZOLE [Suspect]
     Active Substance: TIOCONAZOLE
     Indication: Vulvovaginal mycotic infection
     Dosage: 300 MG, SINGLE
     Route: 067
     Dates: start: 20210831, end: 20210831
  2. WEGOVY [Concomitant]
     Active Substance: SEMAGLUTIDE
     Indication: Diabetes mellitus
     Dosage: UNK
     Route: 065
     Dates: start: 202108
  3. PHENTERMINE [Concomitant]
     Active Substance: PHENTERMINE
     Indication: Metabolic disorder
     Dosage: UNK
     Route: 065
     Dates: start: 202107
  4. PROGESTERONE [Concomitant]
     Active Substance: PROGESTERONE
     Indication: Contraception
     Dosage: UNK
     Route: 065
     Dates: start: 202107

REACTIONS (3)
  - Hypersensitivity [Recovered/Resolved]
  - Vulvovaginal burning sensation [Recovered/Resolved]
  - Vulvovaginal pruritus [Recovered/Resolved]

NARRATIVE: CASE EVENT DATE: 20210901
